FAERS Safety Report 14659805 (Version 2)
Quarter: 2018Q3

REPORT INFORMATION
  Report Type: Spontaneous
  Country: PL (occurrence: PL)
  Receive Date: 20180320
  Receipt Date: 20180724
  Transmission Date: 20181010
  Serious: Yes (Hospitalization, Disabling, Other)
  Sender: FDA-Public Use
  Company Number: PL-AUROBINDO-AUR-APL-2017-46253

PATIENT
  Age: 57 Year
  Sex: Female
  Weight: 56 kg

DRUGS (16)
  1. IBANDRONIC ACID 150 MG [Suspect]
     Active Substance: IBANDRONIC ACID
     Indication: OSTEOPOROSIS
     Dosage: 150 MG, MONTHLY
     Route: 048
  2. KETOPROFEN. [Suspect]
     Active Substance: KETOPROFEN
     Dosage: UNK ()
     Route: 048
  3. CALCIUM [Concomitant]
     Active Substance: CALCIUM
     Indication: PRODUCT USED FOR UNKNOWN INDICATION
  4. DEXKETOPROFEN [Suspect]
     Active Substance: DEXKETOPROFEN
     Dosage: UNK ()
     Route: 048
  5. KETOPROFEN. [Suspect]
     Active Substance: KETOPROFEN
     Indication: PAIN
     Dosage: UNK ()
     Route: 030
  6. ALEVE [Suspect]
     Active Substance: NAPROXEN SODIUM
     Indication: PAIN
     Dosage: UNK ()
     Route: 030
  7. ALEVE [Suspect]
     Active Substance: NAPROXEN SODIUM
     Dosage: UNK ()
     Route: 048
  8. VITAMIN D3 [Concomitant]
     Active Substance: CHOLECALCIFEROL
     Dosage: 1250 U, QD
     Route: 048
  9. KETOPROFEN. [Suspect]
     Active Substance: KETOPROFEN
     Dosage: UNK ()
     Route: 048
  10. KETOPROFEN. [Suspect]
     Active Substance: KETOPROFEN
     Route: 048
  11. VITAMIN D3 [Concomitant]
     Active Substance: CHOLECALCIFEROL
     Indication: PRODUCT USED FOR UNKNOWN INDICATION
     Dosage: UNK ()
  12. DEXKETOPROFEN [Suspect]
     Active Substance: DEXKETOPROFEN
     Route: 030
  13. DEXKETOPROFEN [Suspect]
     Active Substance: DEXKETOPROFEN
     Indication: PAIN
     Dosage: UNK ()
     Route: 030
  14. DEXKETOPROFEN [Suspect]
     Active Substance: DEXKETOPROFEN
     Dosage: UNK ()
     Route: 048
  15. VITAMIN D                          /00107901/ [Concomitant]
     Active Substance: ERGOCALCIFEROL
     Indication: PRODUCT USED FOR UNKNOWN INDICATION
     Dosage: VITAMIN D3 1000 U CALCIUM 500 MG ()
  16. KETOPROFEN. [Suspect]
     Active Substance: KETOPROFEN
     Dosage: UNK ()
     Route: 030

REACTIONS (6)
  - Drug ineffective [Unknown]
  - Fracture displacement [Unknown]
  - Groin pain [Unknown]
  - Femoral neck fracture [Recovering/Resolving]
  - Bone disorder [Unknown]
  - Pain in extremity [Unknown]
